FAERS Safety Report 25111007 (Version 1)
Quarter: 2025Q1

REPORT INFORMATION
  Report Type: Report from Study
  Country: CA (occurrence: None)
  Receive Date: 20250324
  Receipt Date: 20250324
  Transmission Date: 20250409
  Serious: Yes (Other)
  Sender: ORION
  Company Number: CA-PFIZER INC-202500060141

PATIENT
  Age: 50 Year
  Sex: Female

DRUGS (10)
  1. METHOTREXATE [Suspect]
     Active Substance: METHOTREXATE
     Indication: Product used for unknown indication
  2. HYRIMOZ [Suspect]
     Active Substance: ADALIMUMAB-ADAZ
     Indication: Rheumatoid arthritis
  3. HYRIMOZ [Suspect]
     Active Substance: ADALIMUMAB-ADAZ
  4. HYRIMOZ [Suspect]
     Active Substance: ADALIMUMAB-ADAZ
  5. HYRIMOZ [Suspect]
     Active Substance: ADALIMUMAB-ADAZ
  6. HYRIMOZ [Suspect]
     Active Substance: ADALIMUMAB-ADAZ
  7. HYRIMOZ [Suspect]
     Active Substance: ADALIMUMAB-ADAZ
  8. CORTISONE [Concomitant]
     Active Substance: CORTISONE
     Indication: Arthritis
  9. CORTISONE [Concomitant]
     Active Substance: CORTISONE
  10. CORTISONE [Concomitant]
     Active Substance: CORTISONE

REACTIONS (10)
  - Drug ineffective [Not Recovered/Not Resolved]
  - Abdominal distension [Not Recovered/Not Resolved]
  - Abdominal pain [Not Recovered/Not Resolved]
  - Dizziness [Not Recovered/Not Resolved]
  - Somnolence [Not Recovered/Not Resolved]
  - Fatigue [Not Recovered/Not Resolved]
  - Musculoskeletal stiffness [Not Recovered/Not Resolved]
  - Arthralgia [Not Recovered/Not Resolved]
  - Rheumatoid arthritis [Not Recovered/Not Resolved]
  - Swelling of eyelid [Not Recovered/Not Resolved]
